FAERS Safety Report 20214085 (Version 1)
Quarter: 2021Q4

REPORT INFORMATION
  Report Type: Spontaneous
  Country: US (occurrence: None)
  Receive Date: 20211221
  Receipt Date: 20211221
  Transmission Date: 20220303
  Serious: Yes (Hospitalization)
  Sender: FDA-Public Use
  Company Number: None

PATIENT
  Age: 62 Year
  Sex: Male

DRUGS (1)
  1. MAVYRET [Suspect]
     Active Substance: GLECAPREVIR\PIBRENTASVIR
     Dosage: OTHER QUANTITY : 100/400MG;?FREQUENCY : DAILY;?
     Route: 048
     Dates: start: 202112

REACTIONS (2)
  - Haemorrhage [None]
  - Polyp [None]

NARRATIVE: CASE EVENT DATE: 20211201
